FAERS Safety Report 15846417 (Version 1)
Quarter: 2019Q1

REPORT INFORMATION
  Report Type: Spontaneous
  Country: US (occurrence: US)
  Receive Date: 20190120
  Receipt Date: 20190120
  Transmission Date: 20190417
  Serious: No
  Sender: FDA-Public Use
  Company Number: US-009507513-1901USA004157

PATIENT
  Age: 84 Year
  Sex: Male

DRUGS (5)
  1. CLOPIDOGREL [Concomitant]
     Active Substance: CLOPIDOGREL BISULFATE
  2. BELSOMRA [Suspect]
     Active Substance: SUVOREXANT
     Indication: INSOMNIA
     Dosage: 1 DOSAGE FORM, ONE TABLET PER NIGHT(QD)
     Route: 048
     Dates: start: 201812
  3. METOPROLOL. [Concomitant]
     Active Substance: METOPROLOL
  4. GABAPENTIN. [Concomitant]
     Active Substance: GABAPENTIN
  5. HYDROCODONE [Concomitant]
     Active Substance: HYDROCODONE

REACTIONS (3)
  - Hallucination [Recovered/Resolved]
  - Sleep disorder [Recovered/Resolved]
  - Feeling abnormal [Recovered/Resolved]

NARRATIVE: CASE EVENT DATE: 201812
